FAERS Safety Report 14469277 (Version 2)
Quarter: 2018Q1

REPORT INFORMATION
  Report Type: Spontaneous
  Country: JP (occurrence: JP)
  Receive Date: 20180131
  Receipt Date: 20180214
  Transmission Date: 20180509
  Serious: Yes (Hospitalization)
  Sender: FDA-Public Use
  Company Number: PHJP2018JP001972

PATIENT
  Age: 93 Year
  Sex: Male

DRUGS (1)
  1. RIVASTACH [Suspect]
     Active Substance: RIVASTIGMINE
     Indication: DEMENTIA ALZHEIMER^S TYPE
     Dosage: 175.5 MG, QD
     Route: 062

REACTIONS (8)
  - Toxicity to various agents [Recovering/Resolving]
  - Muscular weakness [Recovering/Resolving]
  - Dyspnoea [Recovering/Resolving]
  - Salivary hypersecretion [Recovering/Resolving]
  - Decreased appetite [Recovering/Resolving]
  - Altered state of consciousness [Recovering/Resolving]
  - Miosis [Recovering/Resolving]
  - Intentional overdose [Unknown]
